FAERS Safety Report 19110628 (Version 1)
Quarter: 2021Q2

REPORT INFORMATION
  Report Type: Report from Study
  Country: US (occurrence: US)
  Receive Date: 20210409
  Receipt Date: 20210409
  Transmission Date: 20210717
  Serious: Yes (Hospitalization)
  Sender: FDA-Public Use
  Company Number: US-GILEAD-2021-0523838

PATIENT
  Age: 71 Year
  Sex: Female

DRUGS (1)
  1. AZTREONAM LYSINE [Suspect]
     Active Substance: AZTREONAM LYSINE
     Indication: BRONCHIECTASIS
     Dosage: 75 MG/ VL, TID
     Route: 055
     Dates: start: 20201017

REACTIONS (4)
  - Off label use [Not Recovered/Not Resolved]
  - Renal disorder [Unknown]
  - Electrolyte imbalance [Unknown]
  - Hypophagia [Unknown]
